FAERS Safety Report 8990025 (Version 1)
Quarter: 2012Q4

REPORT INFORMATION
  Report Type: 
  Country: US (occurrence: US)
  Receive Date: 20121228
  Receipt Date: 20121228
  Transmission Date: 20130627
  Serious: Yes (Disabling, Other)
  Sender: FDA-Public Use
  Company Number: US-BAXTER-2012BAX028858

PATIENT
  Sex: Male

DRUGS (2)
  1. DIANEAL PD2 [Suspect]
     Indication: END STAGE RENAL DISEASE (ESRD)
     Route: 033
  2. EXTRANEAL [Suspect]
     Indication: END STAGE RENAL DISEASE (ESRD)
     Route: 033

REACTIONS (2)
  - Diabetes mellitus inadequate control [Not Recovered/Not Resolved]
  - Blindness [Not Recovered/Not Resolved]
